FAERS Safety Report 9610909 (Version 2)
Quarter: 2013Q4

REPORT INFORMATION
  Report Type: Spontaneous
  Country: US (occurrence: US)
  Receive Date: 20131009
  Receipt Date: 20131022
  Transmission Date: 20140711
  Serious: Yes (Hospitalization, Other)
  Sender: FDA-Public Use
  Company Number: US-B.I. PHARMACEUTICALS,INC./RIDGEFIELD-2013-BI-31684BP

PATIENT
  Age: 81 Year
  Sex: Female

DRUGS (1)
  1. TRADJENTA [Suspect]
     Dosage: 5 MG
     Dates: start: 201309

REACTIONS (1)
  - Pancreatitis [Recovered/Resolved]
